FAERS Safety Report 11001517 (Version 1)
Quarter: 2015Q2

REPORT INFORMATION
  Report Type: Spontaneous
  Country: US (occurrence: US)
  Receive Date: 20150408
  Receipt Date: 20150408
  Transmission Date: 20150821
  Serious: Yes (Other)
  Sender: FDA-Public Use
  Company Number: US-TEVA-553588USA

PATIENT
  Age: 73 Year
  Sex: Male
  Weight: 79 kg

DRUGS (14)
  1. WARFARIN [Interacting]
     Active Substance: WARFARIN
     Indication: DEEP VEIN THROMBOSIS
     Dosage: INCREASED TO 30MG/WEEK, AND THEN REDUCED TO 28.75MG/WEEK
     Route: 065
     Dates: start: 20130227
  2. RIBAVIRIN. [Suspect]
     Active Substance: RIBAVIRIN
     Indication: CHRONIC HEPATITIS C
     Dosage: 200 TO 800MG/DAY
     Route: 065
     Dates: end: 20130508
  3. WARFARIN [Suspect]
     Active Substance: WARFARIN
     Indication: DEEP VEIN THROMBOSIS
     Dosage: RECEIVED 13.75 TO 20MG/WEEK, OVER A PERIOD OF 6 YEARS, AND INCREASED BY 16% (I.E 15 TO 17.5MG/WK)
     Route: 065
  4. WARFARIN [Interacting]
     Active Substance: WARFARIN
     Indication: DEEP VEIN THROMBOSIS
     Dosage: 23.75MG/WEEK, AND SUBSEQUENTLY INCREASED BY 10% (26.25MG/WEEK)
     Route: 065
     Dates: start: 20130516
  5. WARFARIN [Interacting]
     Active Substance: WARFARIN
     Indication: DEEP VEIN THROMBOSIS
     Dosage: INCREASED BY 10%; 26.25MG/WEEK, AND OVER THE NEXT SEVERAL WEEKS, DOSE WAS CONTINUOUSLY ADJUSTED
     Route: 065
     Dates: start: 20130529
  6. RIBAVIRIN. [Suspect]
     Active Substance: RIBAVIRIN
     Indication: CHRONIC HEPATITIS C
     Dosage: 600MG/DAY, AND THEN THE DOSE WAS FLUCTUATED FROM 200 TO 800MG/DAY
     Route: 065
     Dates: start: 20121001
  7. WARFARIN [Interacting]
     Active Substance: WARFARIN
     Indication: DEEP VEIN THROMBOSIS
     Dosage: 23.75MG/WEEK
     Route: 065
     Dates: start: 20130815
  8. RIBAVIRIN. [Suspect]
     Active Substance: RIBAVIRIN
     Indication: CHRONIC HEPATITIS C
     Dosage: 1000MG/DAY, AND DECREASED AGAIN TO 600MG/DAY
     Route: 065
     Dates: start: 20120919
  9. PEGINTERFERON ALFA-2A [Suspect]
     Active Substance: PEGINTERFERON ALFA-2A
     Indication: CHRONIC HEPATITIS C
     Dosage: FREQUENCY: WEEKLY
     Route: 065
     Dates: start: 20120801, end: 20130508
  10. BOCEPREVIR [Interacting]
     Active Substance: BOCEPREVIR
     Indication: CHRONIC HEPATITIS C
     Route: 065
     Dates: start: 20120831, end: 20130508
  11. WARFARIN [Interacting]
     Active Substance: WARFARIN
     Indication: DEEP VEIN THROMBOSIS
     Dosage: ORIGINAL DOSE INCREASED BY 16% (I.E.15-17.5MG/WEEK), AND THEN INCREASED BY 75% FROM 15-26.25MG/WK
     Route: 065
     Dates: start: 20120925
  12. WARFARIN [Interacting]
     Active Substance: WARFARIN
     Indication: DEEP VEIN THROMBOSIS
     Dosage: INCREASED BY 75% FROM 15-26.25MG/WK, AND THEN FURTHER INCREASED TO 30MG/WEEK
     Route: 065
     Dates: start: 20121024
  13. WARFARIN [Interacting]
     Active Substance: WARFARIN
     Indication: DEEP VEIN THROMBOSIS
     Dosage: 28.75MG/WEEK, AND THEN DOSE WAS DECREASED BY 17% TO 23.75MG/WEEK
     Route: 065
     Dates: start: 20130508
  14. RIBAVIRIN. [Suspect]
     Active Substance: RIBAVIRIN
     Indication: CHRONIC HEPATITIS C
     Dosage: AND THEN DECREASED TO 1000MG/DAY
     Route: 065
     Dates: start: 20120801

REACTIONS (5)
  - Anaemia [Unknown]
  - Pelvic abscess [Unknown]
  - International normalised ratio decreased [Recovered/Resolved]
  - Drug interaction [Recovered/Resolved]
  - Subcutaneous abscess [Unknown]
